FAERS Safety Report 19584026 (Version 1)
Quarter: 2021Q3

REPORT INFORMATION
  Report Type: Spontaneous
  Country: HU (occurrence: HU)
  Receive Date: 20210720
  Receipt Date: 20210720
  Transmission Date: 20211014
  Serious: Yes (Hospitalization)
  Sender: FDA-Public Use
  Company Number: HU-ORGANON-O2107HUN001470

PATIENT
  Age: 14939 Day
  Sex: Female
  Weight: 80 kg

DRUGS (3)
  1. FOSTER [Suspect]
     Active Substance: BECLOMETHASONE\FORMOTEROL
     Dosage: 200/6
     Route: 055
     Dates: start: 20190101
  2. MONTELUKAST SODIUM. [Suspect]
     Active Substance: MONTELUKAST SODIUM
     Dosage: 10 MILLIGRAM, QD
     Dates: start: 20190101
  3. FASENRA [Suspect]
     Active Substance: BENRALIZUMAB
     Indication: ASTHMA
     Dosage: 30 MILLIGRAM, EVERY 8 WEEKS; (FORMULATION REPORTED AS: SOLUTION FOR INJECTION IN PRE?FILLED PEN)
     Route: 058
     Dates: start: 202006

REACTIONS (2)
  - Exposure during pregnancy [Unknown]
  - Asthma [Unknown]

NARRATIVE: CASE EVENT DATE: 20210608
